FAERS Safety Report 13839827 (Version 1)
Quarter: 2017Q3

REPORT INFORMATION
  Report Type: Spontaneous
  Country: US (occurrence: US)
  Receive Date: 20170807
  Receipt Date: 20170807
  Transmission Date: 20171127
  Serious: No
  Sender: FDA-Public Use
  Company Number: US-WEST-WARD PHARMACEUTICALS CORP.-US-H14001-17-01533

PATIENT
  Age: 49 Year
  Sex: Female

DRUGS (2)
  1. CEVIMELINE HYDROCHLORIDE. [Suspect]
     Active Substance: CEVIMELINE HYDROCHLORIDE
     Indication: AUTONOMIC NEUROPATHY
     Route: 048
     Dates: start: 201508
  2. CEVIMELINE HYDROCHLORIDE. [Suspect]
     Active Substance: CEVIMELINE HYDROCHLORIDE
     Indication: SJOGREN^S SYNDROME
     Route: 048
     Dates: start: 2013, end: 201508

REACTIONS (2)
  - Urticaria [Recovering/Resolving]
  - Flushing [Recovering/Resolving]

NARRATIVE: CASE EVENT DATE: 201508
